FAERS Safety Report 9535959 (Version 3)
Quarter: 2013Q4

REPORT INFORMATION
  Report Type: Spontaneous
  Country: BR (occurrence: BR)
  Receive Date: 20130919
  Receipt Date: 20131120
  Transmission Date: 20140711
  Serious: Yes (Other)
  Sender: FDA-Public Use
  Company Number: BR-ROCHE-1277781

PATIENT
  Sex: Female

DRUGS (6)
  1. LUCENTIS [Suspect]
     Indication: PRODUCT USED FOR UNKNOWN INDICATION
     Dosage: STRENGTH 10 MG/ML
     Route: 050
     Dates: start: 201202
  2. LUCENTIS [Suspect]
     Route: 050
     Dates: start: 201203
  3. LUCENTIS [Suspect]
     Route: 050
     Dates: start: 201204
  4. LUCENTIS [Suspect]
     Route: 050
     Dates: start: 201205
  5. LUCENTIS [Suspect]
     Route: 050
     Dates: start: 201211
  6. LUCENTIS [Suspect]
     Route: 050
     Dates: start: 20120821

REACTIONS (1)
  - Inflammation [Recovered/Resolved]
